FAERS Safety Report 5314464-2 (Version None)
Quarter: 2007Q2

REPORT INFORMATION
  Report Type: 
  Country: None (occurrence: None)
  Receive Date: 20070502
  Receipt Date: 20070423
  Transmission Date: 20071010
  Serious: Yes (Hospitalization)
  Sender: FDA-Public Use
  Company Number: JP-BAYER-200710305BYL

PATIENT
  Age: 75 Year
  Sex: Male
  Weight: 67 kg

DRUGS (14)
  1. ASPIRIN [Suspect]
     Indication: MYOCARDIAL INFARCTION
     Dosage: TOTAL DAILY DOSE: 100 MG  UNIT DOSE: 100 MG
     Route: 048
     Dates: start: 20060402, end: 20070416
  2. TAKEPRON [Suspect]
     Route: 048
     Dates: end: 20070416
  3. SIGMART [Concomitant]
     Route: 048
     Dates: end: 20070416
  4. MUCOSTA [Concomitant]
     Route: 048
     Dates: end: 20070416
  5. MAINTATE [Concomitant]
     Route: 048
     Dates: end: 20070416
  6. MAGNESIUM OXIDE [Concomitant]
     Route: 048
     Dates: end: 20070416
  7. BASEN [Concomitant]
     Route: 048
     Dates: start: 20070413, end: 20070416
  8. ROCEPHIN [Concomitant]
     Route: 041
     Dates: start: 20070402, end: 20070404
  9. DIOVAN [Concomitant]
     Route: 048
     Dates: end: 20070413
  10. FLOMOX [Concomitant]
     Route: 048
     Dates: start: 20070406, end: 20070408
  11. LEVOFLOXACIN [Concomitant]
     Route: 048
     Dates: start: 20070409, end: 20070410
  12. CALONAL [Concomitant]
     Route: 048
     Dates: start: 20070410, end: 20070412
  13. SAIKOKEISHITO [Concomitant]
     Route: 048
     Dates: start: 20070322
  14. KETEK [Concomitant]
     Route: 048
     Dates: start: 20070323

REACTIONS (2)
  - PYREXIA [None]
  - RENAL IMPAIRMENT [None]
